FAERS Safety Report 7608159-X (Version None)
Quarter: 2011Q3

REPORT INFORMATION
  Report Type: 
  Country: None (occurrence: None)
  Receive Date: 20110714
  Receipt Date: 20110712
  Transmission Date: 20111222
  Serious: Yes (Death, Other)
  Sender: FDA-Public Use
  Company Number: KR-ROXANE LABORATORIES, INC.-2011-RO-00973RO

PATIENT
  Age: 60 Year
  Sex: Male

DRUGS (9)
  1. THALIDOMIDE [Suspect]
     Indication: MULTIPLE MYELOMA
  2. MELPHALAN HYDROCHLORIDE [Suspect]
     Indication: BONE MARROW CONDITIONING REGIMEN
  3. BORTEZOMIB [Suspect]
     Indication: MULTIPLE MYELOMA
  4. DEXAMETHASONE [Suspect]
  5. CYCLOPHOSPHAMIDE [Suspect]
  6. DEXAMETHASONE [Suspect]
     Indication: MULTIPLE MYELOMA
  7. PREDNISOLONE [Suspect]
  8. CYCLOPHOSPHAMIDE [Suspect]
     Indication: MULTIPLE MYELOMA
  9. THALIDOMIDE [Suspect]

REACTIONS (2)
  - MULTIPLE MYELOMA [None]
  - PLASMACYTOMA [None]
